FAERS Safety Report 11074664 (Version 1)
Quarter: 2015Q2

REPORT INFORMATION
  Report Type: Spontaneous
  Country: US (occurrence: US)
  Receive Date: 20150429
  Receipt Date: 20150429
  Transmission Date: 20150821
  Serious: Yes (Death, Hospitalization, Other)
  Sender: FDA-Public Use
  Company Number: US-CIPLA LTD.-2015US03387

PATIENT

DRUGS (13)
  1. ASPIRIN. [Concomitant]
     Active Substance: ASPIRIN
     Route: 065
  2. MOMETASONE FUROATE. [Concomitant]
     Active Substance: MOMETASONE FUROATE
     Route: 065
  3. ROSUVASTATIN [Concomitant]
     Active Substance: ROSUVASTATIN
  4. VERAPAMIL [Concomitant]
     Active Substance: VERAPAMIL HYDROCHLORIDE
     Indication: PANCREATIC CARCINOMA METASTATIC
  5. VERAPAMIL [Concomitant]
     Active Substance: VERAPAMIL HYDROCHLORIDE
     Indication: METASTASES TO LUNG
  6. LEVODOPA [Concomitant]
     Active Substance: LEVODOPA
  7. PACLITAXEL. [Suspect]
     Active Substance: PACLITAXEL
     Indication: METASTASES TO LUNG
     Dosage: 100 MG/M2, ON DAYS 1, 8, AND 15 OF A 28-DAY CYCLE.
  8. LEVOTHYROXINE [Concomitant]
     Active Substance: LEVOTHYROXINE
  9. METOPROLOL [Concomitant]
     Active Substance: METOPROLOL
     Route: 065
  10. OMEPRAZOLE. [Concomitant]
     Active Substance: OMEPRAZOLE
  11. GEMCITABINE [Suspect]
     Active Substance: GEMCITABINE\GEMCITABINE HYDROCHLORIDE
     Dosage: 1,000 MG/M2 ON DAYS 1, 8, AND 15 OF A 28-DAY CYCLE.
     Route: 065
     Dates: start: 20130520
  12. CARBIDOPA. [Concomitant]
     Active Substance: CARBIDOPA
  13. PACLITAXEL. [Suspect]
     Active Substance: PACLITAXEL
     Indication: PANCREATIC CARCINOMA METASTATIC
     Dosage: 125 MG/M2 ON DAYS 1, 8, AND 15 OF A 28-DAY CYCLE.
     Route: 065
     Dates: start: 20130520

REACTIONS (10)
  - Tremor [Unknown]
  - Wheezing [Unknown]
  - Pleural effusion [Unknown]
  - Pneumonia [Unknown]
  - Drug tolerance decreased [Fatal]
  - Pulmonary oedema [Unknown]
  - Neutropenia [Unknown]
  - Thrombocytopenia [Unknown]
  - Haemoglobin decreased [Unknown]
  - Pneumonia aspiration [Unknown]
